FAERS Safety Report 23887755 (Version 1)
Quarter: 2024Q2

REPORT INFORMATION
  Report Type: Spontaneous
  Country: JP (occurrence: JP)
  Receive Date: 20240523
  Receipt Date: 20240523
  Transmission Date: 20240716
  Serious: Yes (Hospitalization, Other)
  Sender: FDA-Public Use
  Company Number: JP-SCIEGENP-2024SCLIT00287

PATIENT
  Age: 6 Decade
  Sex: Female

DRUGS (7)
  1. OLMESARTAN MEDOXOMIL [Suspect]
     Active Substance: OLMESARTAN MEDOXOMIL
     Indication: Product used for unknown indication
     Dosage: DAILY DOSE 5 MG
     Route: 048
  2. NIFEDIPINE [Suspect]
     Active Substance: NIFEDIPINE
     Indication: Product used for unknown indication
     Dosage: DAILY DOSE 30 MG
     Route: 048
  3. AZELNIDIPINE [Suspect]
     Active Substance: AZELNIDIPINE
     Indication: Product used for unknown indication
     Dosage: DAILY DOSE 8 MG
     Route: 048
  4. AMLODIPINE BESYLATE [Suspect]
     Active Substance: AMLODIPINE BESYLATE
     Indication: Product used for unknown indication
     Dosage: DAILY DOSE 5 MG
     Route: 048
  5. TELMISARTAN [Suspect]
     Active Substance: TELMISARTAN
     Indication: Product used for unknown indication
     Dosage: DAILY DOSE 40 MG
     Route: 048
  6. VILDAGLIPTIN [Suspect]
     Active Substance: VILDAGLIPTIN
     Indication: Product used for unknown indication
     Dosage: DAILY DOSE 100 MG
     Route: 048
  7. ESAXERENONE [Suspect]
     Active Substance: ESAXERENONE
     Indication: Product used for unknown indication
     Dosage: DAILY DOSE 2.5 MG
     Route: 048

REACTIONS (3)
  - Intentional overdose [Unknown]
  - Compartment syndrome [Recovered/Resolved]
  - Angioedema [Recovered/Resolved]
